FAERS Safety Report 18566378 (Version 1)
Quarter: 2020Q4

REPORT INFORMATION
  Report Type: Spontaneous
  Country: ES (occurrence: ES)
  Receive Date: 20201201
  Receipt Date: 20201201
  Transmission Date: 20210114
  Serious: Yes (Other)
  Sender: FDA-Public Use
  Company Number: ES-MYLANLABS-2020M1097425

PATIENT
  Age: 73 Year
  Sex: Female

DRUGS (2)
  1. DONEPEZIL. [Concomitant]
     Active Substance: DONEPEZIL
     Indication: PRODUCT USED FOR UNKNOWN INDICATION
     Dosage: UNK
     Dates: start: 201707
  2. LEVETIRACETAM. [Suspect]
     Active Substance: LEVETIRACETAM
     Indication: MYOCLONUS
     Dosage: 1000 MILLIGRAM, QD (500 MILLIGRAM, 2X/DAY (BID)
     Dates: start: 201801, end: 201811

REACTIONS (6)
  - Aggression [Recovered/Resolved]
  - Generalised tonic-clonic seizure [Recovered/Resolved]
  - Urinary tract infection [Unknown]
  - Partial seizures with secondary generalisation [Recovered/Resolved]
  - Confusional state [Unknown]
  - Irritability [Recovered/Resolved]

NARRATIVE: CASE EVENT DATE: 2018
